FAERS Safety Report 8279903-6 (Version None)
Quarter: 2012Q2

REPORT INFORMATION
  Report Type: 
  Country: None (occurrence: None)
  Receive Date: 20120412
  Receipt Date: 20120409
  Transmission Date: 20120825
  Serious: Yes (Other)
  Sender: FDA-Public Use
  Company Number: US-PFIZER INC-2012088516

PATIENT
  Sex: Female

DRUGS (2)
  1. LYRICA [Suspect]
     Dosage: 75 MG, 3X/DAY
  2. LYRICA [Suspect]
     Dosage: UNK

REACTIONS (7)
  - CONFUSIONAL STATE [None]
  - ANGER [None]
  - MENTAL IMPAIRMENT [None]
  - VISION BLURRED [None]
  - DAYDREAMING [None]
  - DISTURBANCE IN ATTENTION [None]
  - DIZZINESS [None]
